FAERS Safety Report 12884532 (Version 2)
Quarter: 2016Q4

REPORT INFORMATION
  Report Type: Report from Study
  Country: BG (occurrence: BG)
  Receive Date: 20161026
  Receipt Date: 20161114
  Transmission Date: 20170207
  Serious: Yes (Death, Life-Threatening, Hospitalization, Disabling)
  Sender: FDA-Public Use
  Company Number: BG-AMGEN-BGRSL2016111892

PATIENT
  Age: 74 Year
  Sex: Male
  Weight: 75 kg

DRUGS (1)
  1. VECTIBIX [Suspect]
     Active Substance: PANITUMUMAB
     Indication: COLORECTAL CANCER METASTATIC
     Dosage: 300 UNK, TWICE MONTHLY
     Route: 065
     Dates: start: 20160728, end: 201610

REACTIONS (5)
  - Oedema peripheral [Fatal]
  - Fatigue [Fatal]
  - Dyspnoea [Fatal]
  - Asthenia [Fatal]
  - Mobility decreased [Not Recovered/Not Resolved]

NARRATIVE: CASE EVENT DATE: 2016
